FAERS Safety Report 9261518 (Version 1)
Quarter: 2013Q2

REPORT INFORMATION
  Report Type: Spontaneous
  Country: LB (occurrence: LB)
  Receive Date: 20130429
  Receipt Date: 20130429
  Transmission Date: 20140414
  Serious: Yes (Hospitalization, Other)
  Sender: FDA-Public Use
  Company Number: PHHY2013LB039055

PATIENT
  Age: 18 Year
  Sex: Female

DRUGS (3)
  1. PREDNISONE [Suspect]
     Dosage: 5 MG, UNK
  2. METHOTREXATE [Suspect]
     Dosage: 10 MG, QW
  3. HYDROXYCHLOROQUINE [Concomitant]
     Dosage: 200 MG, DAILY

REACTIONS (16)
  - Arthritis bacterial [Recovered/Resolved]
  - Arthralgia [Recovered/Resolved]
  - Joint stiffness [Recovered/Resolved]
  - Sacroiliitis [Recovered/Resolved]
  - Salmonella bacteraemia [Recovered/Resolved]
  - Pyrexia [Recovered/Resolved]
  - Tachycardia [Recovered/Resolved]
  - Splenomegaly [Recovered/Resolved]
  - Hypokinesia [Recovered/Resolved]
  - Abscess bacterial [Recovered/Resolved]
  - Hypotension [Recovered/Resolved]
  - Pain [Recovered/Resolved]
  - Anaemia [Recovered/Resolved]
  - Blood creatine increased [Unknown]
  - Neutrophil count increased [Unknown]
  - C-reactive protein increased [Unknown]
